FAERS Safety Report 22027180 (Version 2)
Quarter: 2023Q1

REPORT INFORMATION
  Report Type: Spontaneous
  Country: IT (occurrence: None)
  Receive Date: 20230223
  Receipt Date: 20230302
  Transmission Date: 20230418
  Serious: Yes (Hospitalization)
  Sender: FDA-Public Use
  Company Number: 2023A038113

PATIENT
  Age: 58 Year
  Sex: Male

DRUGS (11)
  1. QUETIAPINE [Suspect]
     Active Substance: QUETIAPINE
     Indication: Depression
     Dosage: NOT KNOWN
     Route: 048
     Dates: end: 20230115
  2. SERTRALINE [Suspect]
     Active Substance: SERTRALINE HYDROCHLORIDE
     Indication: Bipolar disorder
     Dosage: NOT KNOWN.
     Route: 048
     Dates: end: 20230115
  3. ACETAMINOPHEN [Suspect]
     Active Substance: ACETAMINOPHEN
     Dosage: NOT KNOWN
     Route: 048
     Dates: end: 20230115
  4. LITHIUM [Suspect]
     Active Substance: LITHIUM
     Dosage: NOT KNOWN.
     Route: 048
  5. LITHIUM CARBONATE [Suspect]
     Active Substance: LITHIUM CARBONATE
     Dosage: NOT KNOWN.
     Route: 048
  6. REYATAZ [Concomitant]
     Active Substance: ATAZANAVIR SULFATE
     Route: 048
  7. HALCION [Concomitant]
     Active Substance: TRIAZOLAM
     Route: 048
  8. VENLAFAXINE HYDROCHLORIDE [Concomitant]
     Active Substance: VENLAFAXINE HYDROCHLORIDE
     Route: 048
  9. ARIPIPRAZOLE [Concomitant]
     Active Substance: ARIPIPRAZOLE
  10. ABACAVIR + LAMIVUDINA [Concomitant]
     Route: 048
  11. CHOLECALCIFEROL [Concomitant]
     Active Substance: CHOLECALCIFEROL

REACTIONS (5)
  - Cardiac arrest [Recovering/Resolving]
  - Suicide attempt [Recovered/Resolved]
  - Hypothermia [Unknown]
  - Hypotension [Not Recovered/Not Resolved]
  - Intentional product misuse [Recovered/Resolved]

NARRATIVE: CASE EVENT DATE: 20230115
